FAERS Safety Report 23916558 (Version 3)
Quarter: 2024Q2

REPORT INFORMATION
  Report Type: Report from Study
  Country: DE (occurrence: DE)
  Receive Date: 20240529
  Receipt Date: 20240611
  Transmission Date: 20240715
  Serious: Yes (Hospitalization, Other)
  Sender: FDA-Public Use
  Company Number: DE-PFM-2024-02467

PATIENT
  Age: 62 Year
  Sex: Female

DRUGS (23)
  1. ENCORAFENIB [Suspect]
     Active Substance: ENCORAFENIB
     Indication: Malignant melanoma
     Dosage: 450 MG
     Route: 048
     Dates: start: 20220906, end: 20221024
  2. ENCORAFENIB [Suspect]
     Active Substance: ENCORAFENIB
     Dosage: 450 MG
     Route: 048
     Dates: start: 20221027, end: 20240103
  3. ENCORAFENIB [Suspect]
     Active Substance: ENCORAFENIB
     Dosage: 450 MG
     Route: 048
     Dates: start: 20240207
  4. BINIMETINIB [Suspect]
     Active Substance: BINIMETINIB
     Indication: Malignant melanoma
     Dosage: 45 MG, BID (2/DAY)
     Route: 048
     Dates: start: 20220906, end: 20221024
  5. BINIMETINIB [Suspect]
     Active Substance: BINIMETINIB
     Dosage: 45 MG, BID (2/DAY)
     Route: 048
     Dates: start: 20221027, end: 20240103
  6. BINIMETINIB [Suspect]
     Active Substance: BINIMETINIB
     Dosage: 45 MG, BID (2/DAY)
     Route: 048
     Dates: start: 20240207
  7. PANTOPRAZOLE [Concomitant]
     Active Substance: PANTOPRAZOLE
     Indication: Prophylaxis
     Dosage: UNK
     Route: 065
  8. CALCIUM SANDOZ [CALCIUM GLUBIONATE] [Concomitant]
     Indication: Prophylaxis
     Dosage: UNK, D OSTEO
     Route: 065
  9. LEVOTHYROXINE [Concomitant]
     Active Substance: LEVOTHYROXINE\LEVOTHYROXINE SODIUM
     Dosage: UNK
     Route: 065
  10. PREDNISOLONE [Concomitant]
     Active Substance: PREDNISOLONE
     Indication: Adrenocortical insufficiency acute
     Dosage: UNK
     Route: 065
     Dates: start: 20220921, end: 20220926
  11. PREDNISOLONE [Concomitant]
     Active Substance: PREDNISOLONE
     Dosage: UNK
     Route: 065
     Dates: start: 20240105, end: 20240105
  12. HYDROCORTISONE [Concomitant]
     Active Substance: HYDROCORTISONE\HYDROCORTISONE ACETATE
     Indication: Hypophysitis
     Dosage: UNK
     Route: 065
     Dates: start: 20221027, end: 20240107
  13. HYDROCORTISONE [Concomitant]
     Active Substance: HYDROCORTISONE\HYDROCORTISONE ACETATE
     Indication: Adrenocortical insufficiency acute
     Dosage: UNK
     Route: 065
     Dates: start: 20240108
  14. ACETAMINOPHEN [Concomitant]
     Active Substance: ACETAMINOPHEN
     Indication: Pyrexia
     Dosage: UNK
     Route: 065
     Dates: start: 20221027, end: 20221027
  15. SODIUM CHLORIDE [Concomitant]
     Active Substance: SODIUM CHLORIDE
     Indication: Cerebrospinal fluid leakage
     Dosage: UNK
     Route: 065
     Dates: start: 20230228
  16. GRANISETRON [Concomitant]
     Active Substance: GRANISETRON
     Indication: Cerebrospinal fluid leakage
     Dosage: UNK
     Route: 065
     Dates: start: 20230228
  17. METAMIZOLE [Concomitant]
     Active Substance: METAMIZOLE
     Indication: Cerebrospinal fluid leakage
     Dosage: UNK
     Route: 065
     Dates: start: 20230228
  18. OXYCODONE [Concomitant]
     Active Substance: OXYCODONE\OXYCODONE HYDROCHLORIDE
     Indication: Cerebrospinal fluid leakage
     Dosage: UNK
     Route: 065
     Dates: start: 20230228
  19. CLINDAMYCIN [Concomitant]
     Active Substance: CLINDAMYCIN
     Indication: Furuncle
     Dosage: UNK
     Route: 065
     Dates: start: 20230324, end: 20230330
  20. OXYCODON/NALOXON [Concomitant]
     Indication: Pain
     Dosage: UNK
     Route: 065
     Dates: start: 20231203
  21. METAMIZOL [Concomitant]
     Active Substance: METAMIZOLE SODIUM
     Indication: Pain
     Dosage: UNK
     Route: 065
     Dates: start: 20231203, end: 20231212
  22. CEFTRIAXONE [Concomitant]
     Active Substance: CEFTRIAXONE\CEFTRIAXONE SODIUM
     Indication: Urosepsis
     Dosage: UNK
     Route: 065
     Dates: start: 20240109, end: 20240119
  23. JONOSTERIL [CALCIUM ACETATE;MAGNESIUM ACETATE TETRAHYDRATE;POTASSIUM A [Concomitant]
     Indication: Urosepsis
     Dosage: UNK
     Route: 065
     Dates: start: 20240109

REACTIONS (1)
  - Troponin increased [Recovered/Resolved]

NARRATIVE: CASE EVENT DATE: 20240125
